FAERS Safety Report 6070795-2 (Version None)
Quarter: 2009Q1

REPORT INFORMATION
  Report Type: 
  Country: None (occurrence: None)
  Receive Date: 20090209
  Receipt Date: 20080626
  Transmission Date: 20090719
  Serious: No
  Sender: FDA-Public Use
  Company Number: A0736098A

PATIENT
  Age: 30 Year
  Sex: Male

DRUGS (1)
  1. PAXIL [Suspect]
     Indication: DEPRESSION
     Route: 048
     Dates: start: 20010101

REACTIONS (6)
  - ALOPECIA [None]
  - ANXIETY [None]
  - DEPRESSION [None]
  - EJACULATION FAILURE [None]
  - LIBIDO DECREASED [None]
  - WEIGHT INCREASED [None]
